FAERS Safety Report 18436611 (Version 1)
Quarter: 2020Q4

REPORT INFORMATION
  Report Type: Spontaneous
  Country: US (occurrence: US)
  Receive Date: 20201028
  Receipt Date: 20201028
  Transmission Date: 20210114
  Serious: Yes (Life-Threatening, Hospitalization)
  Sender: FDA-Public Use
  Company Number: US-MYLANLABS-2020M1090464

PATIENT
  Age: 26 Year
  Sex: Female

DRUGS (7)
  1. INSULIN GLARGINE [Suspect]
     Active Substance: INSULIN GLARGINE
     Indication: DRUG THERAPY
     Dosage: HIGH DOSE
     Route: 065
  2. AMLODIPINE [Suspect]
     Active Substance: AMLODIPINE BESYLATE
     Indication: PRODUCT USED FOR UNKNOWN INDICATION
     Dosage: PILLS
     Route: 065
  3. METHYLENE BLUE. [Concomitant]
     Active Substance: METHYLENE BLUE
     Indication: HYPOTENSION
     Dosage: 113MG (1MG/KG) OVER TWENTY MINUTES
     Route: 042
  4. CALCIUM [Suspect]
     Active Substance: CALCIUM
     Indication: DRUG THERAPY
     Route: 042
  5. EPINEPHRINE. [Suspect]
     Active Substance: EPINEPHRINE
     Indication: PRODUCT USED FOR UNKNOWN INDICATION
     Dosage: UNK
     Route: 065
  6. NOREPINEPHRINE. [Suspect]
     Active Substance: NOREPINEPHRINE
     Indication: PRODUCT USED FOR UNKNOWN INDICATION
     Route: 065
  7. GLUCAGON. [Suspect]
     Active Substance: GLUCAGON
     Indication: DRUG THERAPY
     Route: 042

REACTIONS (6)
  - Hypotension [Recovering/Resolving]
  - Drug ineffective [Unknown]
  - Vasodilatation [Recovering/Resolving]
  - Tachycardia [Recovering/Resolving]
  - Shock [Recovering/Resolving]
  - Intentional overdose [Recovering/Resolving]
